FAERS Safety Report 8986875 (Version 1)
Quarter: 2012Q4

REPORT INFORMATION
  Report Type: 
  Country: GH (occurrence: GH)
  Receive Date: 20121227
  Receipt Date: 20121227
  Transmission Date: 20130627
  Serious: Yes (Death, Other)
  Sender: FDA-Public Use
  Company Number: PHHY2012GH119252

PATIENT
  Sex: Female

DRUGS (1)
  1. GLIVEC [Suspect]
     Indication: GASTROINTESTINAL STROMAL TUMOUR
     Dosage: 400 mg, UNK
     Dates: start: 20100902, end: 20121101

REACTIONS (4)
  - Death [Fatal]
  - Neoplasm recurrence [Not Recovered/Not Resolved]
  - General physical health deterioration [Unknown]
  - Drug resistance [Unknown]
